FAERS Safety Report 5604572-0 (Version None)
Quarter: 2008Q1

REPORT INFORMATION
  Report Type: 
  Country: None (occurrence: None)
  Receive Date: 20080123
  Receipt Date: 20080114
  Transmission Date: 20080703
  Serious: Yes (Death)
  Sender: FDA-Public Use
  Company Number: B0502929A

PATIENT
  Age: 62 Year
  Sex: Male

DRUGS (5)
  1. ASPIRIN [Suspect]
  2. IBUPROFEN [Suspect]
  3. PSEUDOEPHEDRINE HCL [Suspect]
     Dosage: ORAL
     Route: 048
  4. AMOXICILLIN TRIHYDRATE [Suspect]
     Dosage: ORAL
     Route: 048
  5. DEXTROMETHORPHAN HYDROBROMIDE [Suspect]
     Dosage: ORAL
     Route: 048

REACTIONS (1)
  - COMPLETED SUICIDE [None]
